FAERS Safety Report 7582692-1 (Version None)
Quarter: 2011Q2

REPORT INFORMATION
  Report Type: 
  Country: None (occurrence: None)
  Receive Date: 20110527
  Receipt Date: 20101202
  Transmission Date: 20111010
  Serious: Yes (Other)
  Sender: FDA-Public Use
  Company Number: US201011003204

PATIENT
  Age: 50 Year
  Sex: Female
  Weight: 106 kg

DRUGS (13)
  1. LAMOTRIGINE [Concomitant]
  2. PROTONIX [Concomitant]
  3. PREVACID [Concomitant]
  4. CRESTOR (ROSUVASTATIN CALCIUM)   I [Concomitant]
  5. BYETTA [Suspect]
     Indication: TYPE 2 DIABETES MELLITUS
     Dosage: 5 UG, 2/D, SUBCUTANEOUS
     Route: 058
     Dates: start: 20100902
  6. METFORMIN HCL [Concomitant]
  7. GLIPIZIDE [Concomitant]
  8. IODINE (IODINE) [Concomitant]
  9. ENBREL [Concomitant]
  10. UNITHROID (LEVOTHYROXINE SODIUM) [Concomitant]
  11. FOLIC ACID [Concomitant]
  12. LOVAZA [Concomitant]
  13. CITALOPRAM HYDROBROMIDE [Concomitant]

REACTIONS (5)
  - OEDEMA PERIPHERAL [None]
  - HYPERSENSITIVITY [None]
  - URTICARIA [None]
  - EYE SWELLING [None]
  - DYSPNOEA [None]
